FAERS Safety Report 9441473 (Version 1)
Quarter: 2013Q3

REPORT INFORMATION
  Report Type: Spontaneous
  Country: JP (occurrence: JP)
  Receive Date: 20130805
  Receipt Date: 20130805
  Transmission Date: 20140515
  Serious: Yes (Hospitalization)
  Sender: FDA-Public Use
  Company Number: JP-SUCAMPO PHARMA AMERICAS, INC-SPI201300545

PATIENT
  Sex: Male

DRUGS (7)
  1. AMITIZA [Suspect]
     Dosage: 24 MCG, QD
     Route: 048
     Dates: start: 20130520
  2. BAYASPIRIN [Concomitant]
     Dosage: 100 MG, QD
     Route: 048
     Dates: start: 20090812
  3. TAKEPRON [Concomitant]
     Dosage: 15 MG, QD
     Route: 048
     Dates: start: 20070808
  4. LASIX [Concomitant]
     Dosage: 40 MG, UNK
     Route: 048
     Dates: start: 20070117
  5. LIPITOR [Concomitant]
     Dosage: 5 MG, QD
     Route: 048
     Dates: start: 20100521
  6. LUNESTA [Concomitant]
     Dosage: 1 MG, QD
     Route: 048
     Dates: start: 20130410
  7. FERROMIA [Concomitant]
     Dosage: 50 MG, UNK
     Route: 048
     Dates: start: 20130703

REACTIONS (2)
  - Pancreatitis [None]
  - Blood creatine phosphokinase increased [Unknown]
